FAERS Safety Report 12676094 (Version 1)
Quarter: 2016Q3

REPORT INFORMATION
  Report Type: Spontaneous
  Country: US (occurrence: None)
  Receive Date: 20160822
  Receipt Date: 20160822
  Transmission Date: 20161109
  Serious: Yes (Other)
  Sender: FDA-Public Use
  Company Number: None

PATIENT
  Age: 69 Year
  Sex: Female
  Weight: 61.24 kg

DRUGS (6)
  1. ZANTAC [Concomitant]
     Active Substance: RANITIDINE HYDROCHLORIDE
  2. ALPRAZOLAM 1MG SANDOZ, 1 MG SANDOZ GG258 [Suspect]
     Active Substance: ALPRAZOLAM
     Indication: ANXIETY
     Dosage: 90 TABLET(S) THREE TIMES A DAY TAKEN BY MOUTH
     Route: 048
     Dates: start: 20160701, end: 20160819
  3. THYROID [Concomitant]
     Active Substance: LEVOTHYROXINE\LIOTHYRONINE
  4. ASPIRIN. [Concomitant]
     Active Substance: ASPIRIN
  5. IMDUR [Concomitant]
     Active Substance: ISOSORBIDE MONONITRATE
  6. ALPRAZOLAM 1MG SANDOZ, 1 MG SANDOZ GG258 [Suspect]
     Active Substance: ALPRAZOLAM
     Indication: PALPITATIONS
     Dosage: 90 TABLET(S) THREE TIMES A DAY TAKEN BY MOUTH
     Route: 048
     Dates: start: 20160701, end: 20160819

REACTIONS (9)
  - Constipation [None]
  - Somnolence [None]
  - Dysuria [None]
  - Photophobia [None]
  - Irritability [None]
  - Migraine [None]
  - Tachycardia [None]
  - Hangover [None]
  - Product substitution issue [None]

NARRATIVE: CASE EVENT DATE: 20160801
